FAERS Safety Report 7564829-3 (Version None)
Quarter: 2011Q2

REPORT INFORMATION
  Report Type: 
  Country: None (occurrence: None)
  Receive Date: 20110622
  Receipt Date: 20110228
  Transmission Date: 20111010
  Serious: Yes (Other)
  Sender: FDA-Public Use
  Company Number: US-MYLANLABS-2010S1023263

PATIENT
  Age: 45 Year
  Sex: Female

DRUGS (4)
  1. DEPAKOTE [Concomitant]
  2. CLOZAPINE [Suspect]
     Indication: SCHIZOPHRENIA
  3. CLOZAPINE [Suspect]
     Dates: end: 20110110
  4. MOTRIN [Concomitant]

REACTIONS (1)
  - GRANULOCYTOPENIA [None]
